FAERS Safety Report 9067035 (Version 1)
Quarter: 2013Q1

REPORT INFORMATION
  Report Type: Report from Study
  Country: US (occurrence: US)
  Receive Date: 20130131
  Receipt Date: 20130131
  Transmission Date: 20140127
  Serious: No
  Sender: FDA-Public Use
  Company Number: US-ABBOTT-12P-163-0999292-00

PATIENT
  Age: 50 Year
  Sex: Female

DRUGS (6)
  1. HUMIRA [Suspect]
     Indication: PSORIATIC ARTHROPATHY
     Dates: start: 201109, end: 201208
  2. HYDROCHLOROTHIAZIDE [Concomitant]
     Indication: PRODUCT USED FOR UNKNOWN INDICATION
     Dosage: 25MG DAILY
     Route: 048
  3. VIT D [Concomitant]
     Indication: PRODUCT USED FOR UNKNOWN INDICATION
     Dosage: 4000 IU DAILY
     Route: 048
  4. MOTRIN [Concomitant]
     Indication: PAIN
  5. TRAMADOL [Concomitant]
     Indication: PAIN
  6. AMLODIPINE BESYLATE [Concomitant]
     Indication: BLOOD PRESSURE
     Dosage: 2.5MG DAILY

REACTIONS (9)
  - Hypertension [Not Recovered/Not Resolved]
  - Arthralgia [Not Recovered/Not Resolved]
  - Hypoaesthesia [Not Recovered/Not Resolved]
  - Oedema peripheral [Not Recovered/Not Resolved]
  - Polyarthritis [Not Recovered/Not Resolved]
  - Asthenia [Not Recovered/Not Resolved]
  - Asthenia [Not Recovered/Not Resolved]
  - Breast pain [Not Recovered/Not Resolved]
  - Lymphadenopathy [Not Recovered/Not Resolved]
